FAERS Safety Report 10414233 (Version 1)
Quarter: 2014Q3

REPORT INFORMATION
  Report Type: Spontaneous
  Country: IR (occurrence: IR)
  Receive Date: 20140827
  Receipt Date: 20140827
  Transmission Date: 20150326
  Serious: Yes (Other)
  Sender: FDA-Public Use
  Company Number: PHHY2014IR106886

PATIENT
  Age: 23 Year
  Sex: Male

DRUGS (2)
  1. PREDNISOLONE. [Suspect]
     Active Substance: PREDNISOLONE
     Dosage: 15 MG, PER DAY
  2. CYCLOSPORINE. [Concomitant]
     Active Substance: CYCLOSPORINE

REACTIONS (4)
  - Blindness unilateral [Recovering/Resolving]
  - Macular degeneration [Unknown]
  - Chorioretinopathy [Unknown]
  - Retinal detachment [Unknown]
